FAERS Safety Report 13264107 (Version 1)
Quarter: 2017Q1

REPORT INFORMATION
  Report Type: Report from Study
  Country: US (occurrence: US)
  Receive Date: 20170223
  Receipt Date: 20170223
  Transmission Date: 20170428
  Serious: Yes (Other)
  Sender: FDA-Public Use
  Company Number: US-PFIZER INC-2017074937

PATIENT
  Age: 74 Year
  Sex: Female

DRUGS (1)
  1. IBRANCE [Suspect]
     Active Substance: PALBOCICLIB
     Indication: BREAST CANCER
     Dosage: 125 MG, CYCLIC, (DAILY FOR DAY 1- DAY 21 FOLLOWED)
     Route: 048
     Dates: start: 20160112

REACTIONS (3)
  - Headache [Unknown]
  - Hypertension [Unknown]
  - Bone marrow failure [Unknown]
